FAERS Safety Report 10190614 (Version 1)
Quarter: 2014Q2

REPORT INFORMATION
  Report Type: Spontaneous
  Country: US (occurrence: US)
  Receive Date: 20140523
  Receipt Date: 20140523
  Transmission Date: 20141212
  Serious: Yes (Other)
  Sender: FDA-Public Use
  Company Number: US-AMGEN-USASP2014037371

PATIENT
  Sex: Male

DRUGS (2)
  1. VECTIBIX [Suspect]
     Indication: COLON CANCER
     Dosage: UNK
     Route: 065
  2. 5 FLUOROURACIL                     /00098801/ [Concomitant]
     Indication: COLON CANCER
     Dosage: UNK

REACTIONS (1)
  - Hepatic neoplasm [Unknown]
